FAERS Safety Report 17014252 (Version 2)
Quarter: 2020Q1

REPORT INFORMATION
  Report Type: Spontaneous
  Country: FR (occurrence: FR)
  Receive Date: 20191111
  Receipt Date: 20200124
  Transmission Date: 20200409
  Serious: Yes (Hospitalization)
  Sender: FDA-Public Use
  Company Number: FR-SUN PHARMACEUTICAL INDUSTRIES LTD-2019RR-226810

PATIENT
  Age: 67 Year
  Sex: Male
  Weight: 101 kg

DRUGS (4)
  1. IBUPROFEN. [Suspect]
     Active Substance: IBUPROFEN
     Indication: INTERVERTEBRAL DISC PROTRUSION
     Dosage: 800 MILLIGRAMS, DAILY
     Route: 065
     Dates: start: 20181015, end: 20181022
  2. NOVONORM 2 MG, COMPRIME [Concomitant]
     Active Substance: REPAGLINIDE
     Indication: TYPE 2 DIABETES MELLITUS
     Dosage: 1 DOSAGE FORM, DAILY
     Route: 065
     Dates: start: 20110615
  3. KARDEGIC [Concomitant]
     Active Substance: ASPIRIN DL-LYSINE
     Indication: PRODUCT USED FOR UNKNOWN INDICATION
     Dosage: 1 DOSAGE FORM, DAILY
     Route: 065
  4. METFORMINE [Concomitant]
     Active Substance: METFORMIN HYDROCHLORIDE
     Indication: TYPE 2 DIABETES MELLITUS
     Dosage: 1 GRAM, DAILY
     Route: 065
     Dates: start: 20110615, end: 20181023

REACTIONS (2)
  - Acute kidney injury [Recovering/Resolving]
  - Anuria [Recovered/Resolved]

NARRATIVE: CASE EVENT DATE: 20181021
